FAERS Safety Report 6154696-7 (Version None)
Quarter: 2009Q2

REPORT INFORMATION
  Report Type: 
  Country: None (occurrence: None)
  Receive Date: 20090414
  Receipt Date: 20090407
  Transmission Date: 20091009
  Serious: Yes (Disabling)
  Sender: FDA-Public Use
  Company Number: A0777366A

PATIENT
  Age: 91 Year
  Sex: Male

DRUGS (9)
  1. ADVAIR HFA [Suspect]
     Indication: CHRONIC OBSTRUCTIVE PULMONARY DISEASE
     Dosage: 1PUFF TWICE PER DAY
     Route: 055
     Dates: start: 20070101
  2. LORATADINE [Concomitant]
  3. NAMENDA [Concomitant]
  4. METOCLOPRAMIDE [Concomitant]
  5. LEVOTHYROXINE SODIUM [Concomitant]
  6. FINASTERIDE [Concomitant]
  7. ATARAX [Concomitant]
  8. FUROSEMIDE [Concomitant]
  9. GLYCOLAX [Concomitant]

REACTIONS (6)
  - ADVERSE DRUG REACTION [None]
  - DERMATITIS [None]
  - ECZEMA [None]
  - OEDEMA [None]
  - RASH [None]
  - RASH ERYTHEMATOUS [None]
